FAERS Safety Report 20955813 (Version 1)
Quarter: 2022Q2

REPORT INFORMATION
  Report Type: Spontaneous
  Country: US (occurrence: US)
  Receive Date: 20220614
  Receipt Date: 20220614
  Transmission Date: 20220720
  Serious: No
  Sender: FDA-Public Use
  Company Number: US-009507513-2206USA002078

PATIENT
  Age: 71 Year
  Sex: Female

DRUGS (1)
  1. BELSOMRA [Suspect]
     Active Substance: SUVOREXANT
     Indication: Sleep disorder
     Dosage: 10 MILLIGRAM, QD
     Route: 048
     Dates: start: 20220601

REACTIONS (8)
  - Balance disorder [Unknown]
  - Hyperhidrosis [Unknown]
  - Feeling hot [Unknown]
  - Pain [Unknown]
  - Flatulence [Unknown]
  - Somnolence [Unknown]
  - Dizziness [Unknown]
  - Nausea [Unknown]

NARRATIVE: CASE EVENT DATE: 20220601
